FAERS Safety Report 7446016-2 (Version None)
Quarter: 2011Q2

REPORT INFORMATION
  Report Type: 
  Country: None (occurrence: None)
  Receive Date: 20110429
  Receipt Date: 20110420
  Transmission Date: 20111010
  Serious: Yes (Death, Other)
  Sender: FDA-Public Use
  Company Number: EG-GENZYME-CERZ-1001706

PATIENT

DRUGS (3)
  1. CEREZYME [Suspect]
     Dosage: 20 U/KG, Q2W
     Route: 042
     Dates: start: 19990101
  2. CEREZYME [Suspect]
     Indication: GAUCHER'S DISEASE
     Dosage: 60 U/KG, QW
     Route: 042
     Dates: end: 20110225
  3. CEREZYME [Suspect]
     Dosage: 30 U/KG, UNK

REACTIONS (8)
  - AORTIC VALVE STENOSIS [None]
  - LEFT VENTRICULAR HYPERTROPHY [None]
  - SYNCOPE [None]
  - CARDIAC ARREST [None]
  - AORTIC VALVE DISEASE [None]
  - ARRHYTHMIA [None]
  - MITRAL VALVE STENOSIS [None]
  - DECREASED ACTIVITY [None]
